FAERS Safety Report 5251744-3 (Version None)
Quarter: 2007Q1

REPORT INFORMATION
  Report Type: 
  Country: None (occurrence: None)
  Receive Date: 20070228
  Receipt Date: 20061024
  Transmission Date: 20070707
  Serious: Yes (Hospitalization)
  Sender: FDA-Public Use
  Company Number: US-GLAXOSMITHKLINE-A0624760A

PATIENT
  Age: 13 Year
  Sex: Male

DRUGS (1)
  1. LAMICTAL [Suspect]
     Indication: DRUG USE FOR UNKNOWN INDICATION
     Dosage: 25MG TWICE PER DAY
     Route: 048

REACTIONS (4)
  - NAUSEA [None]
  - RASH [None]
  - STEVENS-JOHNSON SYNDROME [None]
  - VIRAL INFECTION [None]
